FAERS Safety Report 4687130-4 (Version None)
Quarter: 2005Q2

REPORT INFORMATION
  Report Type: 
  Country: None (occurrence: None)
  Receive Date: 20050608
  Receipt Date: 20050525
  Transmission Date: 20051028
  Serious: Yes (Hospitalization)
  Sender: FDA-Public Use
  Company Number: HQWYE001127MAY05

PATIENT
  Age: 20 Year
  Sex: Female
  Weight: 54.48 kg

DRUGS (1)
  1. ALESSE [Suspect]
     Indication: CONTRACEPTION
     Dosage: 1 TABLET 1X PER 1 DAY ORAL
     Route: 048
     Dates: start: 20050505, end: 20050514

REACTIONS (2)
  - AGGRESSION [None]
  - PSYCHOTIC DISORDER [None]
